FAERS Safety Report 13983138 (Version 2)
Quarter: 2017Q4

REPORT INFORMATION
  Report Type: Spontaneous
  Country: US (occurrence: US)
  Receive Date: 20170918
  Receipt Date: 20171227
  Transmission Date: 20180321
  Serious: Yes (Death, Hospitalization)
  Sender: FDA-Public Use
  Company Number: US-JNJFOC-20170914579

PATIENT
  Age: 69 Year
  Sex: Male
  Weight: 143 kg

DRUGS (1)
  1. IMBRUVICA [Suspect]
     Active Substance: IBRUTINIB
     Indication: CHRONIC LYMPHOCYTIC LEUKAEMIA
     Route: 048
     Dates: start: 20160608, end: 20171016

REACTIONS (2)
  - Subdural haematoma [Fatal]
  - Glioblastoma multiforme [Unknown]

NARRATIVE: CASE EVENT DATE: 20170816
